FAERS Safety Report 8963502 (Version 1)
Quarter: 2012Q4

REPORT INFORMATION
  Report Type: 
  Country: US (occurrence: US)
  Receive Date: 20121213
  Receipt Date: 20121213
  Transmission Date: 20130627
  Serious: Yes (Death)
  Sender: FDA-Public Use
  Company Number: PHHY2012US114403

PATIENT
  Sex: Male

DRUGS (1)
  1. ASCRIPTIN BUFFERED REG STRENGTH TABLETS [Suspect]
     Indication: CARDIAC DISORDER
     Dosage: 1 DF, UNK
     Route: 048

REACTIONS (2)
  - Death [Fatal]
  - Incorrect drug administration duration [Unknown]
